FAERS Safety Report 7409278-3 (Version None)
Quarter: 2011Q2

REPORT INFORMATION
  Report Type: 
  Country: None (occurrence: None)
  Receive Date: 20110412
  Receipt Date: 20110406
  Transmission Date: 20111010
  Serious: Yes (Death)
  Sender: FDA-Public Use
  Company Number: A0922276A

PATIENT
  Age: 62 Year
  Sex: Male

DRUGS (1)
  1. PROMACTA [Suspect]
     Indication: MULTIPLE MYELOMA
     Dosage: 50MG PER DAY
     Dates: start: 20100209, end: 20100910

REACTIONS (1)
  - MULTIPLE MYELOMA [None]
